FAERS Safety Report 5454452-9 (Version None)
Quarter: 2007Q3

REPORT INFORMATION
  Report Type: 
  Country: None (occurrence: None)
  Receive Date: 20070917
  Receipt Date: 20061117
  Transmission Date: 20080115
  Serious: No
  Sender: FDA-Public Use
  Company Number: US-ASTRAZENECA-2006UW19062

PATIENT
  Age: 39 Year
  Sex: Male
  Weight: 99.8 kg

DRUGS (4)
  1. SEROQUEL [Suspect]
     Indication: BIPOLAR DISORDER
     Route: 048
     Dates: start: 20060908
  2. VIREAD [Concomitant]
  3. VIRAMUNE [Concomitant]
  4. EPIVIR [Concomitant]

REACTIONS (3)
  - HEADACHE [None]
  - RHINORRHOEA [None]
  - SINUS HEADACHE [None]
